FAERS Safety Report 25603827 (Version 2)
Quarter: 2025Q3

REPORT INFORMATION
  Report Type: Spontaneous
  Country: US (occurrence: US)
  Receive Date: 20250725
  Receipt Date: 20250903
  Transmission Date: 20251021
  Serious: No
  Sender: STALLERGENES
  Company Number: US-STALCOR-2025-AER-01911

PATIENT
  Age: 6 Year
  Sex: Male

DRUGS (2)
  1. PALFORZIA [Suspect]
     Active Substance: PEANUT
     Indication: Food allergy
     Dosage: 300MG: MAINTENANCE DOSE- DISPENSED ON 18-APR-2025
     Route: 048
  2. LORATADINE [Concomitant]
     Active Substance: LORATADINE
     Indication: Product used for unknown indication

REACTIONS (3)
  - Gastroenteritis viral [Recovered/Resolved]
  - Product dose omission issue [Recovered/Resolved]
  - Product dose omission in error [Recovered/Resolved]

NARRATIVE: CASE EVENT DATE: 20250509
